FAERS Safety Report 5367253-7 (Version None)
Quarter: 2007Q2

REPORT INFORMATION
  Report Type: 
  Country: None (occurrence: None)
  Receive Date: 20070620
  Receipt Date: 20070620
  Transmission Date: 20071010
  Serious: Yes (Other)
  Sender: FDA-Public Use
  Company Number: None

PATIENT
  Age: 46 Year
  Sex: Female

DRUGS (1)
  1. PEGASYS [Suspect]
     Indication: HEPATITIS C
     Dosage: 180MCG

REACTIONS (5)
  - ASTHENIA [None]
  - DELIRIUM [None]
  - INFLUENZA LIKE ILLNESS [None]
  - SCREAMING [None]
  - VOMITING [None]
